FAERS Safety Report 12160599 (Version 1)
Quarter: 2016Q1

REPORT INFORMATION
  Report Type: Report from Study
  Country: US (occurrence: US)
  Receive Date: 20160308
  Receipt Date: 20160308
  Transmission Date: 20160526
  Serious: No
  Sender: FDA-Public Use
  Company Number: US-THERATECHNOLOGIES, INC.-TH-2016-00017

PATIENT
  Sex: Male
  Weight: 108.96 kg

DRUGS (2)
  1. EGRIFTA [Suspect]
     Active Substance: TESAMORELIN
     Indication: HIV INFECTION
     Dosage: 4 MILLIGRAM
     Route: 058
  2. HIV MEDICATION [Concomitant]
     Indication: HIV INFECTION
     Dosage: UNKNOWN

REACTIONS (1)
  - Arthralgia [Recovered/Resolved]

NARRATIVE: CASE EVENT DATE: 2016
